FAERS Safety Report 4906042-1 (Version None)
Quarter: 2006Q1

REPORT INFORMATION
  Report Type: 
  Country: None (occurrence: None)
  Receive Date: 20060207
  Receipt Date: 20060207
  Transmission Date: 20060701
  Serious: No
  Sender: FDA-Public Use
  Company Number: None

PATIENT
  Age: 71 Year
  Sex: Male
  Weight: 90.7194 kg

DRUGS (1)
  1. VIAGRA [Suspect]
     Indication: ERECTILE DYSFUNCTION
     Dosage: 1/2 TABLET AS NEEDED PO
     Route: 048
     Dates: start: 20040201, end: 20060115

REACTIONS (3)
  - MACULOPATHY [None]
  - VISION BLURRED [None]
  - VISUAL ACUITY REDUCED [None]
